FAERS Safety Report 5322499-9 (Version None)
Quarter: 2007Q2

REPORT INFORMATION
  Report Type: 
  Country: None (occurrence: None)
  Receive Date: 20070511
  Receipt Date: 20070507
  Transmission Date: 20071010
  Serious: Yes (Life-Threatening)
  Sender: FDA-Public Use
  Company Number: NO-MERCK-0705NOR00003

PATIENT
  Age: 49 Year
  Sex: Male

DRUGS (7)
  1. SINGULAIR [Suspect]
     Indication: ASTHMA
     Route: 048
     Dates: start: 20041215, end: 20050108
  2. BUDESONIDE AND FORMOTEROL FUMARATE [Concomitant]
     Indication: ASTHMA
  3. ACETAMINOPHEN [Concomitant]
     Route: 048
  4. PREDNISOLONE [Concomitant]
     Indication: ASTHMA
     Route: 048
     Dates: end: 20051223
  5. DEXCHLORPHENIRAMINE MALEATE [Concomitant]
     Route: 048
  6. IBUPROFEN [Concomitant]
     Indication: PAIN
     Route: 048
  7. ALBUTEROL SULFATE [Concomitant]
     Indication: ASTHMA

REACTIONS (1)
  - ALLERGIC GRANULOMATOUS ANGIITIS [None]
